FAERS Safety Report 9401291 (Version 2)
Quarter: 2013Q3

REPORT INFORMATION
  Report Type: Spontaneous
  Country: LY (occurrence: LY)
  Receive Date: 20130715
  Receipt Date: 20130726
  Transmission Date: 20140515
  Serious: Yes (Death)
  Sender: FDA-Public Use
  Company Number: LY-ABBOTT-13P-097-1119698-00

PATIENT
  Age: 4 Day
  Sex: Male
  Weight: 1.2 kg

DRUGS (10)
  1. SURVANTA [Suspect]
     Indication: ACUTE RESPIRATORY DISTRESS SYNDROME
     Dosage: 4 ML/KG ENDOTRACHAEL
     Dates: start: 20130512
  2. PENICILLINE [Concomitant]
     Indication: PRODUCT USED FOR UNKNOWN INDICATION
     Route: 042
     Dates: start: 20120512, end: 20120517
  3. GENTAMYCIN [Concomitant]
     Indication: PRODUCT USED FOR UNKNOWN INDICATION
     Route: 042
     Dates: start: 20130512, end: 20130517
  4. AMINOPHYLLINE [Concomitant]
     Indication: PRODUCT USED FOR UNKNOWN INDICATION
     Dosage: 7.2 MG LD
     Route: 042
     Dates: start: 20130512
  5. AMINOPHYLLINE [Concomitant]
     Dosage: 3 MG MD/12 HRS
     Route: 042
     Dates: end: 20130517
  6. CA GLUCONATE [Concomitant]
     Indication: PRODUCT USED FOR UNKNOWN INDICATION
     Route: 042
     Dates: start: 20130513, end: 20130520
  7. MERONEM [Concomitant]
     Indication: PRODUCT USED FOR UNKNOWN INDICATION
     Route: 042
     Dates: start: 20130515, end: 20130520
  8. VANCOMYCIN [Concomitant]
     Indication: PRODUCT USED FOR UNKNOWN INDICATION
     Route: 042
     Dates: start: 20130515, end: 20130519
  9. VIT K [Concomitant]
     Indication: PRODUCT USED FOR UNKNOWN INDICATION
     Route: 042
     Dates: start: 20130516
  10. MORPHINE [Concomitant]
     Indication: PRODUCT USED FOR UNKNOWN INDICATION
     Route: 042
     Dates: start: 20130516, end: 20130517

REACTIONS (1)
  - Pulmonary haemorrhage [Fatal]
